APPROVED DRUG PRODUCT: DYLOJECT
Active Ingredient: DICLOFENAC SODIUM
Strength: 37.5MG/ML (37.5MG/ML) **Federal Register determination that product was not discontinued or withdrawn for safety or effectiveness reasons**
Dosage Form/Route: SOLUTION;INTRAVENOUS
Application: N022396 | Product #001
Applicant: JAVELIN PHARMACEUTICALS INC A WHOLLY OWNED SUDSIDIARY OF HOSPIRA INC
Approved: Dec 23, 2014 | RLD: Yes | RS: No | Type: DISCN

PATENTS:
Patent 8946292 | Expires: Mar 22, 2027